FAERS Safety Report 9640037 (Version 1)
Quarter: 2013Q4

REPORT INFORMATION
  Report Type: Spontaneous
  Country: US (occurrence: None)
  Receive Date: 20131022
  Receipt Date: 20131022
  Transmission Date: 20140711
  Serious: Yes (Other)
  Sender: FDA-Public Use
  Company Number: None

PATIENT
  Age: 59 Year
  Sex: Female

DRUGS (2)
  1. MINIVELLE [Suspect]
     Indication: MENOPAUSE
     Dosage: .0375 2X/WK PATCH BELOW WAIST ON ABDOMEN
     Dates: start: 20130423, end: 20130509
  2. MINIVELLE [Suspect]
     Indication: MENOPAUSE
     Dosage: PATCH BELOW WAIST ON ABDOMEN
     Dates: start: 20130510, end: 20130522

REACTIONS (5)
  - Heart rate increased [None]
  - Energy increased [None]
  - Fatigue [None]
  - Somnolence [None]
  - Insomnia [None]
